FAERS Safety Report 25433955 (Version 1)
Quarter: 2025Q2

REPORT INFORMATION
  Report Type: Spontaneous
  Country: US (occurrence: US)
  Receive Date: 20250613
  Receipt Date: 20250613
  Transmission Date: 20250717
  Serious: No
  Sender: ALVOGEN
  Company Number: US-ALVOGEN-2025097853

PATIENT
  Sex: Female

DRUGS (2)
  1. LISDEXAMFETAMINE [Suspect]
     Active Substance: LISDEXAMFETAMINE
     Indication: Attention deficit hyperactivity disorder
     Route: 048
     Dates: start: 20250412
  2. LISDEXAMFETAMINE [Suspect]
     Active Substance: LISDEXAMFETAMINE
     Indication: Attention deficit hyperactivity disorder
     Dosage: LESS POWDER IN 30 MG?ORANGE AND WHITE?TOOK 12 CAPSULES
     Route: 048
     Dates: start: 202504

REACTIONS (5)
  - Behaviour disorder [Unknown]
  - Condition aggravated [Unknown]
  - Drug effect less than expected [Unknown]
  - Product physical issue [Unknown]
  - Underdose [Unknown]

NARRATIVE: CASE EVENT DATE: 20250401
